FAERS Safety Report 8307620-2 (Version None)
Quarter: 2012Q2

REPORT INFORMATION
  Report Type: 
  Country: None (occurrence: None)
  Receive Date: 20120424
  Receipt Date: 20120418
  Transmission Date: 20120825
  Serious: Yes (Hospitalization, Other)
  Sender: FDA-Public Use
  Company Number: DE-PFIZER INC-2012045238

PATIENT
  Age: 71 Year
  Sex: Male
  Weight: 75 kg

DRUGS (3)
  1. TORISEL [Suspect]
     Dosage: 50 MG, WEEKLY
     Route: 042
     Dates: start: 20120202
  2. TORISEL [Suspect]
     Indication: MANTLE CELL LYMPHOMA
     Dosage: 175 MG, WEEKLY
     Route: 042
     Dates: start: 20111018, end: 20111101
  3. TORISEL [Suspect]
     Dosage: 75 MG, WEEKLY
     Route: 042
     Dates: start: 20111108, end: 20120110

REACTIONS (14)
  - ESCHERICHIA TEST POSITIVE [None]
  - PLEURAL EFFUSION [None]
  - ASCITES [None]
  - CLOSTRIDIUM TEST POSITIVE [None]
  - IATROGENIC INFECTION [None]
  - PYREXIA [None]
  - THROMBOCYTOPENIA [None]
  - BONE MARROW FAILURE [None]
  - ANAEMIA [None]
  - DEHYDRATION [None]
  - DIARRHOEA [None]
  - BLOOD ELECTROLYTES DECREASED [None]
  - RENAL FAILURE ACUTE [None]
  - HYPERTRIGLYCERIDAEMIA [None]
